FAERS Safety Report 10013933 (Version 1)
Quarter: 2014Q1

REPORT INFORMATION
  Report Type: Spontaneous
  Country: US (occurrence: US)
  Receive Date: 20140316
  Receipt Date: 20140316
  Transmission Date: 20141002
  Serious: Yes (Hospitalization)
  Sender: FDA-Public Use
  Company Number: US-LUNDBECK-DKLU1096461

PATIENT
  Age: 28 Year
  Sex: Male

DRUGS (4)
  1. ONFI [Suspect]
     Indication: EPILEPSY
     Route: 048
     Dates: start: 20120725, end: 201312
  2. ONFI [Suspect]
     Route: 048
     Dates: start: 201312
  3. LAMICTAL [Concomitant]
     Indication: PRODUCT USED FOR UNKNOWN INDICATION
  4. DEPAKOTE [Concomitant]
     Indication: PRODUCT USED FOR UNKNOWN INDICATION

REACTIONS (1)
  - Convulsion [Recovered/Resolved]
